FAERS Safety Report 8613447-4 (Version None)
Quarter: 2012Q3

REPORT INFORMATION
  Report Type: 
  Country: None (occurrence: None)
  Receive Date: 20120822
  Receipt Date: 20120820
  Transmission Date: 20120928
  Serious: Yes (Other)
  Sender: FDA-Public Use
  Company Number: FR-AMGEN-FRASP2012042797

PATIENT
  Age: 63 Year
  Sex: Female
  Weight: 43 kg

DRUGS (6)
  1. PREDNISOLONE [Concomitant]
     Indication: MUSCULAR WEAKNESS
     Dosage: 50 MG, UNK
     Route: 048
     Dates: start: 20050801
  2. FEMSEPT [Concomitant]
     Indication: OSTEOPOROSIS POSTMENOPAUSAL
     Dosage: UNK UNK, QWK
     Route: 062
     Dates: start: 20050801
  3. AZATHIOPRINE [Concomitant]
     Indication: MUSCULAR WEAKNESS
     Dosage: 2 DF, QD
     Route: 048
     Dates: start: 20050801
  4. MESTINON [Concomitant]
     Indication: MUSCULAR WEAKNESS
     Dosage: 4 DF, QD
     Route: 048
     Dates: start: 20050801
  5. PROLIA [Suspect]
     Indication: OSTEOPOROSIS
     Dosage: UNK
     Route: 058
     Dates: start: 20120301
  6. VALSARTAN [Concomitant]
     Indication: HYPERTENSION
     Dosage: UNK UNK, QD
     Route: 048
     Dates: start: 20110101

REACTIONS (5)
  - JOINT EFFUSION [None]
  - CELLULITIS [None]
  - CONSTIPATION [None]
  - INFLAMMATION [None]
  - DERMATITIS [None]
